FAERS Safety Report 17690228 (Version 2)
Quarter: 2020Q2

REPORT INFORMATION
  Report Type: Spontaneous
  Country: US (occurrence: US)
  Receive Date: 20200421
  Receipt Date: 20200427
  Transmission Date: 20200714
  Serious: Yes (Death)
  Sender: FDA-Public Use
  Company Number: US-PARATEK PHARMACEUTICALS, INC.-2020PTK00032

PATIENT
  Age: 60 Year
  Sex: Male

DRUGS (1)
  1. NUZYRA [Suspect]
     Active Substance: OMADACYCLINE
     Indication: MYCOBACTERIAL INFECTION
     Dosage: 300 MG, 1X/DAY
     Route: 048
     Dates: start: 2020

REACTIONS (4)
  - Drug dose titration not performed [Recovered/Resolved]
  - Off label use [Recovered/Resolved]
  - Myocardial infarction [Fatal]
  - Insomnia [Unknown]

NARRATIVE: CASE EVENT DATE: 2020
